FAERS Safety Report 5880573-2 (Version None)
Quarter: 2008Q3

REPORT INFORMATION
  Report Type: 
  Country: None (occurrence: None)
  Receive Date: 20080912
  Receipt Date: 20080903
  Transmission Date: 20090109
  Serious: Yes (Other)
  Sender: FDA-Public Use
  Company Number: GB-ABBOTT-08P-167-0474267-00

PATIENT
  Age: 44 Year
  Sex: Male

DRUGS (5)
  1. KALETRA [Suspect]
     Indication: HIV INFECTION
     Dosage: DOSE INCREASED
  2. AZATHIOPRINE [Suspect]
     Indication: GLOMERULONEPHRITIS
  3. PREDNISOLONE [Suspect]
     Indication: GLOMERULONEPHRITIS MEMBRANOUS
  4. EFAVIRENZ [Suspect]
     Indication: HIV INFECTION
     Dosage: NOT REPORTED
  5. EMTRICITABINE [Suspect]
     Indication: HIV INFECTION
     Dosage: NOT REPORTED

REACTIONS (2)
  - OSTEOMYELITIS [None]
  - SALMONELLOSIS [None]
